FAERS Safety Report 25858394 (Version 1)
Quarter: 2025Q3

REPORT INFORMATION
  Report Type: Spontaneous
  Country: EU (occurrence: EU)
  Receive Date: 20250929
  Receipt Date: 20250929
  Transmission Date: 20251020
  Serious: Yes (Hospitalization, Other)
  Sender: AUROBINDO
  Company Number: EU-AFSSAPS-NY2025001385

PATIENT
  Age: 63 Year
  Sex: Female

DRUGS (4)
  1. SUMATRIPTAN [Suspect]
     Active Substance: SUMATRIPTAN
     Indication: Migraine
     Route: 048
     Dates: start: 20250620, end: 20250623
  2. NEFOPAM [Suspect]
     Active Substance: NEFOPAM
     Indication: Migraine
     Route: 048
     Dates: start: 20250620, end: 20250623
  3. KETOPROFEN [Suspect]
     Active Substance: KETOPROFEN
     Indication: Migraine
     Route: 048
     Dates: start: 20250620, end: 20250623
  4. TAHOR [Concomitant]
     Active Substance: ATORVASTATIN CALCIUM
     Indication: Hypercholesterolaemia
     Dosage: 10 MILLIGRAM, ONCE A DAY
     Route: 048

REACTIONS (1)
  - Reversible cerebral vasoconstriction syndrome [Recovered/Resolved]

NARRATIVE: CASE EVENT DATE: 20250620
